FAERS Safety Report 24603842 (Version 1)
Quarter: 2024Q4

REPORT INFORMATION
  Report Type: Spontaneous
  Country: US (occurrence: None)
  Receive Date: 20241111
  Receipt Date: 20241111
  Transmission Date: 20250115
  Serious: No
  Sender: Public
  Company Number: None

PATIENT
  Age: 38 Year
  Sex: Female
  Weight: 52.62 kg

DRUGS (1)
  1. VIMIZIM [Suspect]
     Active Substance: ELOSULFASE ALFA
     Route: 042
     Dates: start: 20240107

REACTIONS (3)
  - Rash erythematous [None]
  - Rash [None]
  - Rash [None]

NARRATIVE: CASE EVENT DATE: 20240711
